FAERS Safety Report 13331497 (Version 1)
Quarter: 2017Q1

REPORT INFORMATION
  Report Type: Spontaneous
  Country: US (occurrence: US)
  Receive Date: 20170314
  Receipt Date: 20170314
  Transmission Date: 20170428
  Serious: No
  Sender: FDA-Public Use
  Company Number: US-JNJFOC-20170221298

PATIENT
  Age: 18 Month
  Sex: Male

DRUGS (2)
  1. MOTRIN INFANTS [Suspect]
     Active Substance: IBUPROFEN
     Indication: PYREXIA
     Dosage: MAY BE 5 ML
     Route: 048
     Dates: start: 20170220, end: 20170220
  2. MOTRIN INFANTS [Suspect]
     Active Substance: IBUPROFEN
     Indication: NASOPHARYNGITIS
     Dosage: MAY BE 5 ML
     Route: 048
     Dates: start: 20170220, end: 20170220

REACTIONS (3)
  - Accidental exposure to product by child [Unknown]
  - Failure of child resistant mechanism for pharmaceutical product [Unknown]
  - Overdose [Unknown]
